FAERS Safety Report 6857998-1 (Version None)
Quarter: 2010Q2

REPORT INFORMATION
  Report Type: 
  Country: None (occurrence: None)
  Receive Date: 20100630
  Receipt Date: 20100630
  Transmission Date: 20101027
  Serious: No
  Sender: FDA-Public Use
  Company Number: 1000013487

PATIENT
  Sex: Female

DRUGS (1)
  1. BYSTOLIC [Suspect]
     Indication: MIGRAINE
     Dosage: 25 MG (25 MG, 1IN 1D), ORAL
     Route: 048
     Dates: start: 20100301

REACTIONS (1)
  - MIGRAINE [None]
